FAERS Safety Report 7436305-X (Version None)
Quarter: 2011Q2

REPORT INFORMATION
  Report Type: 
  Country: None (occurrence: None)
  Receive Date: 20110426
  Receipt Date: 20110418
  Transmission Date: 20111010
  Serious: Yes (Death, Hospitalization)
  Sender: FDA-Public Use
  Company Number: US-BIOGENIDEC-2011BI006501

PATIENT
  Age: 65 Year
  Sex: Female

DRUGS (2)
  1. TYSABRI [Suspect]
     Indication: MULTIPLE SCLEROSIS
     Route: 042
     Dates: start: 20091203, end: 20101111
  2. AVONEX [Concomitant]
     Indication: MULTIPLE SCLEROSIS
     Route: 030
     Dates: start: 20061223

REACTIONS (7)
  - CEREBROVASCULAR ACCIDENT [None]
  - RETROPERITONEAL HAEMORRHAGE [None]
  - KLEBSIELLA SEPSIS [None]
  - BLADDER PERFORATION [None]
  - MULTIPLE SCLEROSIS [None]
  - UROSEPSIS [None]
  - PNEUMONIA [None]
